FAERS Safety Report 19685753 (Version 1)
Quarter: 2021Q3

REPORT INFORMATION
  Report Type: Spontaneous
  Country: FR (occurrence: FR)
  Receive Date: 20210811
  Receipt Date: 20210811
  Transmission Date: 20211014
  Serious: Yes (Hospitalization)
  Sender: FDA-Public Use
  Company Number: FR-TEVA-2021-FR-1941950

PATIENT
  Age: 14 Year
  Sex: Female
  Weight: 82 kg

DRUGS (5)
  1. PONSTYL 250 MG, GELULE [Suspect]
     Active Substance: MEFENAMIC ACID
     Indication: PAIN
     Dosage: 2 TO 6 GEL/DAY DURING A CYCLE
     Route: 048
     Dates: start: 20201210, end: 20210110
  2. SPASFON LYOC 80 MG, LYOPHILISAT ORAL [Concomitant]
     Active Substance: PHLOROGLUCINOL
     Route: 048
  3. EXACYL 1 G/10 ML, SOLUTION BUVABLE [Concomitant]
     Route: 048
  4. ANTADYS [Suspect]
     Active Substance: FLURBIPROFEN
     Indication: PAIN
     Dosage: 3 DOSAGE FORMS DAILY;
     Route: 048
     Dates: end: 20210110
  5. DOLIPRANE [Concomitant]
     Active Substance: ACETAMINOPHEN
     Route: 048

REACTIONS (2)
  - Tubulointerstitial nephritis [Recovering/Resolving]
  - Acute kidney injury [Recovering/Resolving]

NARRATIVE: CASE EVENT DATE: 20210109
